FAERS Safety Report 5300341-X (Version None)
Quarter: 2007Q2

REPORT INFORMATION
  Report Type: 
  Country: None (occurrence: None)
  Receive Date: 20070413
  Receipt Date: 20070413
  Transmission Date: 20071010
  Serious: Yes (Life-Threatening, Hospitalization)
  Sender: FDA-Public Use
  Company Number: None

PATIENT
  Age: 38 Year
  Sex: Female
  Weight: 59.8748 kg

DRUGS (1)
  1. ESTROSTEP FE [Suspect]
     Indication: CONTRACEPTION
     Dosage: 1 DAILY  PO
     Route: 048
     Dates: start: 20051101, end: 20070315

REACTIONS (2)
  - DEEP VEIN THROMBOSIS [None]
  - PAIN IN EXTREMITY [None]
